FAERS Safety Report 13157093 (Version 2)
Quarter: 2017Q2

REPORT INFORMATION
  Report Type: Spontaneous
  Country: US (occurrence: US)
  Receive Date: 20170127
  Receipt Date: 20170523
  Transmission Date: 20170830
  Serious: Yes (Death, Hospitalization, Other)
  Sender: FDA-Public Use
  Company Number: US-BRISTOL-MYERS SQUIBB COMPANY-BMS-2017-003382

PATIENT
  Sex: Female

DRUGS (1)
  1. KENALOG-40 [Suspect]
     Active Substance: TRIAMCINOLONE ACETONIDE
     Indication: BACK PAIN
     Dosage: UNK
     Route: 008
     Dates: start: 20110830

REACTIONS (14)
  - Eye pain [Unknown]
  - Hallucination [Unknown]
  - Aspergillus infection [Unknown]
  - Sensory loss [Unknown]
  - Death [Fatal]
  - Back pain [Unknown]
  - Ataxia [Unknown]
  - Incontinence [Unknown]
  - Product use issue [Unknown]
  - Headache [Unknown]
  - Alopecia [Unknown]
  - Pulmonary oedema [Unknown]
  - Surgery [Unknown]
  - Asthenia [Unknown]

NARRATIVE: CASE EVENT DATE: 20140414
